FAERS Safety Report 7557947-7 (Version None)
Quarter: 2011Q2

REPORT INFORMATION
  Report Type: 
  Country: None (occurrence: None)
  Receive Date: 20110620
  Receipt Date: 20110610
  Transmission Date: 20111010
  Serious: Yes (Hospitalization)
  Sender: FDA-Public Use
  Company Number: B0726966A

PATIENT
  Age: 82 Year
  Sex: Female

DRUGS (1)
  1. AVANDIA [Suspect]
     Indication: DIABETES MELLITUS
     Dosage: 4MG PER DAY
     Route: 048
     Dates: start: 20090721, end: 20100407

REACTIONS (7)
  - CARDIAC FAILURE CONGESTIVE [None]
  - FATIGUE [None]
  - GAIT DISTURBANCE [None]
  - SWELLING [None]
  - DYSPNOEA [None]
  - CHEST PAIN [None]
  - INSOMNIA [None]
